FAERS Safety Report 12308657 (Version 2)
Quarter: 2016Q2

REPORT INFORMATION
  Report Type: Spontaneous
  Country: US (occurrence: US)
  Receive Date: 20160427
  Receipt Date: 20160429
  Transmission Date: 20160815
  Serious: No
  Sender: FDA-Public Use
  Company Number: US-HORIZON-PEN-0189-2016

PATIENT
  Age: 54 Year
  Sex: Male

DRUGS (1)
  1. PENNSAID [Suspect]
     Active Substance: DICLOFENAC SODIUM
     Indication: PRODUCT USED FOR UNKNOWN INDICATION
     Dosage: 2 PUMPS BID TO THE KNEES AND ANKLES
     Dates: start: 20150707

REACTIONS (2)
  - Application site exfoliation [Recovered/Resolved]
  - Off label use [Unknown]
